FAERS Safety Report 5198401-X (Version None)
Quarter: 2006Q4

REPORT INFORMATION
  Report Type: 
  Country: None (occurrence: None)
  Receive Date: 20061229
  Receipt Date: 20061222
  Transmission Date: 20070319
  Serious: Yes (Hospitalization)
  Sender: FDA-Public Use
  Company Number: 163-21880-06110465

PATIENT
  Age: 70 Year
  Sex: Female

DRUGS (11)
  1. REVLIMID [Suspect]
     Indication: MULTIPLE MYELOMA
     Dosage: 25 MG, 1 IN 1 D, ORAL; 15 MG, 1 IN 1 D, ORAL
     Route: 048
     Dates: start: 20060901, end: 20061013
  2. REVLIMID [Suspect]
     Indication: MULTIPLE MYELOMA
     Dosage: 25 MG, 1 IN 1 D, ORAL; 15 MG, 1 IN 1 D, ORAL
     Route: 048
     Dates: start: 20061115, end: 20061122
  3. ALUMINUM HYDROXIDE AND MAGNESIUM TRISILICATE [Concomitant]
  4. NEXIUM [Concomitant]
  5. OXYCODONE HCL [Concomitant]
  6. GLYCOLAX (MACROGOL) [Concomitant]
  7. HYDROCHLOROTHIAZIDE [Concomitant]
  8. DILANTIN [Concomitant]
  9. DEPAKOTE [Concomitant]
  10. ZOMETA [Concomitant]
  11. ASPIRIN [Concomitant]

REACTIONS (4)
  - RED BLOOD CELL COUNT DECREASED [None]
  - RENAL IMPAIRMENT [None]
  - UPPER RESPIRATORY TRACT INFECTION [None]
  - WHITE BLOOD CELL COUNT DECREASED [None]
